FAERS Safety Report 5196104-9 (Version None)
Quarter: 2006Q4

REPORT INFORMATION
  Report Type: 
  Country: None (occurrence: None)
  Receive Date: 20061226
  Receipt Date: 20061213
  Transmission Date: 20070319
  Serious: Yes (Hospitalization)
  Sender: FDA-Public Use
  Company Number: DEWYE833714DEC06

PATIENT
  Age: 40 Year
  Sex: Male

DRUGS (1)
  1. VENLAFAXINE HCL [Suspect]
     Dosage: 1 TABLET (AMOUNT 150 MG) ORAL
     Route: 048
     Dates: start: 20061213, end: 20061213

REACTIONS (3)
  - APALLIC SYNDROME [None]
  - DEPRESSED LEVEL OF CONSCIOUSNESS [None]
  - WRONG DRUG ADMINISTERED [None]
